FAERS Safety Report 6939080-8 (Version None)
Quarter: 2010Q3

REPORT INFORMATION
  Report Type: 
  Country: None (occurrence: None)
  Receive Date: 20100824
  Receipt Date: 20100813
  Transmission Date: 20110219
  Serious: Yes (Other)
  Sender: FDA-Public Use
  Company Number: US-JNJFOC-20100804889

PATIENT
  Sex: Male

DRUGS (3)
  1. SIMPONI [Suspect]
     Indication: PSORIATIC ARTHROPATHY
     Route: 058
  2. METHOTREXATE [Concomitant]
     Indication: PSORIATIC ARTHROPATHY
  3. LEVOXYL [Concomitant]
     Indication: THYROID DISORDER

REACTIONS (3)
  - DRY SKIN [None]
  - ERYTHEMA [None]
  - SPINAL OPERATION [None]
